FAERS Safety Report 4341681-0 (Version None)
Quarter: 2004Q2

REPORT INFORMATION
  Report Type: 
  Country: None (occurrence: None)
  Receive Date: 20040415
  Receipt Date: 20040402
  Transmission Date: 20050107
  Serious: Yes (Hospitalization, Disabling, Other)
  Sender: FDA-Public Use
  Company Number: 2003029605

PATIENT
  Age: 33 Year
  Sex: Male

DRUGS (13)
  1. LIPITOR [Suspect]
     Indication: BLOOD CHOLESTEROL INCREASED
     Dosage: 10 MG (DAILY)
     Dates: start: 19980101
  2. LISINOPRIL [Suspect]
     Indication: HYPERTENSION
     Dosage: 10 MG (DAILY)
     Dates: start: 19981010, end: 19981101
  3. NAPROXEN SODIUM [Suspect]
     Indication: LIMB DISCOMFORT
     Dosage: ORAL
     Route: 048
     Dates: start: 20020301, end: 20020309
  4. BUPROPION HYDROCHLORIDE [Concomitant]
  5. FLUTICASONE PROPIONATE [Concomitant]
  6. SALBUTAMOL (SALBUTAMOL) [Concomitant]
  7. FLUVOXAMINE MALEATE [Concomitant]
  8. PAROXETINE HCL [Concomitant]
  9. METHYLPHENIDATE HCL [Concomitant]
  10. ACETYLSALICYLIC ACID SRT [Concomitant]
  11. METFORMIN HCL [Concomitant]
  12. MULTI VITAMINS (ERGOCALCIFEROL,ASCORBIC ACID, FOLIC ACID, RETINOL, VIT [Concomitant]
  13. TRAZODONE HCL [Concomitant]

REACTIONS (47)
  - ALANINE AMINOTRANSFERASE INCREASED [None]
  - ALBUMIN GLOBULIN RATIO DECREASED [None]
  - ALBUMIN GLOBULIN RATIO INCREASED [None]
  - ALBUMIN URINE PRESENT [None]
  - ARTHRALGIA [None]
  - ASTHMA [None]
  - BACTERIA URINE IDENTIFIED [None]
  - BLOOD CHOLESTEROL INCREASED [None]
  - BLOOD OSMOLARITY INCREASED [None]
  - BLOOD TRIGLYCERIDES INCREASED [None]
  - BLOOD UREA INCREASED [None]
  - BLOOD URINE [None]
  - BONE CYST [None]
  - BRONCHITIS ACUTE [None]
  - CHEST DISCOMFORT [None]
  - CONTUSION [None]
  - CULTURE URINE POSITIVE [None]
  - DIABETES MELLITUS [None]
  - DYSURIA [None]
  - ECZEMA [None]
  - GLUCOSE URINE PRESENT [None]
  - GLYCOSYLATED HAEMOGLOBIN INCREASED [None]
  - HAEMATOCRIT INCREASED [None]
  - HAEMATOMA [None]
  - HEPATIC STEATOSIS [None]
  - HYPERTENSION [None]
  - INTENTIONAL SELF-INJURY [None]
  - JOINT SPRAIN [None]
  - JOINT STIFFNESS [None]
  - JOINT SWELLING [None]
  - LOW DENSITY LIPOPROTEIN DECREASED [None]
  - LOW DENSITY LIPOPROTEIN INCREASED [None]
  - MENISCUS LESION [None]
  - MIDDLE INSOMNIA [None]
  - NUCLEAR MAGNETIC RESONANCE IMAGING ABNORMAL [None]
  - PROTEIN URINE PRESENT [None]
  - RED CELL DISTRIBUTION WIDTH DECREASED [None]
  - RESPIRATORY DISTRESS [None]
  - RESPIRATORY TRACT CONGESTION [None]
  - SINUS TACHYCARDIA [None]
  - SKIN FISSURES [None]
  - SUICIDE ATTEMPT [None]
  - THROAT IRRITATION [None]
  - UPPER RESPIRATORY TRACT INFECTION [None]
  - URINE KETONE BODY PRESENT [None]
  - URINE LEUKOCYTE ESTERASE POSITIVE [None]
  - WOUND [None]
